FAERS Safety Report 7365642-2 (Version None)
Quarter: 2011Q1

REPORT INFORMATION
  Report Type: 
  Country: None (occurrence: None)
  Receive Date: 20110316
  Receipt Date: 20110316
  Transmission Date: 20110831
  Serious: Yes (Hospitalization)
  Sender: FDA-Public Use
  Company Number: None

PATIENT
  Age: 40 Year
  Sex: Male
  Weight: 82 kg

DRUGS (1)
  1. DAPTOMYCIN [Suspect]
     Indication: OSTEOMYELITIS
     Dosage: 500MG IV DAILY
     Route: 042
     Dates: start: 20110214, end: 20110222

REACTIONS (6)
  - RESPIRATORY DISTRESS [None]
  - NAUSEA [None]
  - PYREXIA [None]
  - DYSPNOEA [None]
  - COUGH [None]
  - EOSINOPHILIC PNEUMONIA [None]
